FAERS Safety Report 25953644 (Version 1)
Quarter: 2025Q4

REPORT INFORMATION
  Report Type: Spontaneous
  Country: US (occurrence: US)
  Receive Date: 20251023
  Receipt Date: 20251023
  Transmission Date: 20260118
  Serious: Yes (Other)
  Sender: NOVO NORDISK
  Company Number: US-NOVOPROD-1543177

PATIENT
  Age: 43 Year
  Sex: Male

DRUGS (3)
  1. NOVOLOG [Suspect]
     Active Substance: INSULIN ASPART
     Indication: Diabetes mellitus
     Dosage: BEFORE EACH MEAL ON A SLIDING SCALE
     Route: 058
     Dates: start: 201309
  2. TOUJEO [Concomitant]
     Active Substance: INSULIN GLARGINE
     Indication: Diabetes mellitus
     Dosage: UNK
  3. METFORMIN [Concomitant]
     Active Substance: METFORMIN HYDROCHLORIDE
     Indication: Diabetes mellitus
     Dosage: UNK

REACTIONS (8)
  - Toe amputation [Unknown]
  - Leg amputation [Not Recovered/Not Resolved]
  - Toe amputation [Unknown]
  - Diabetic foot infection [Unknown]
  - Limb injury [Unknown]
  - Impaired healing [Unknown]
  - Diabetes mellitus inadequate control [Unknown]
  - Hyperhidrosis [Unknown]
